FAERS Safety Report 10282383 (Version 2)
Quarter: 2014Q3

REPORT INFORMATION
  Report Type: Report from Study
  Country: US (occurrence: US)
  Receive Date: 20140707
  Receipt Date: 20140707
  Transmission Date: 20150326
  Serious: Yes (Other)
  Sender: FDA-Public Use
  Company Number: US-ROCHE-1344758

PATIENT

DRUGS (3)
  1. LOMUSTINE. [Suspect]
     Active Substance: LOMUSTINE
     Indication: GLIOBLASTOMA
     Route: 065
  2. CARMUSTINE [Suspect]
     Active Substance: CARMUSTINE
     Indication: GLIOBLASTOMA
     Route: 065
  3. BEVACIZUMAB [Suspect]
     Active Substance: BEVACIZUMAB
     Indication: GLIOBLASTOMA
     Route: 065

REACTIONS (12)
  - Pulmonary embolism [Unknown]
  - Haemorrhage intracranial [Unknown]
  - Neutropenia [Unknown]
  - Lymphopenia [Unknown]
  - Venous thrombosis [Unknown]
  - Diarrhoea [Unknown]
  - Impaired healing [Unknown]
  - Thrombocytopenia [Unknown]
  - Fatigue [Unknown]
  - Alanine aminotransferase increased [Unknown]
  - Aspartate aminotransferase increased [Unknown]
  - Hypertension [Unknown]
